FAERS Safety Report 16401856 (Version 1)
Quarter: 2019Q2

REPORT INFORMATION
  Report Type: Spontaneous
  Country: CA (occurrence: CA)
  Receive Date: 20190607
  Receipt Date: 20190607
  Transmission Date: 20190711
  Serious: Yes (Hospitalization, Other)
  Sender: FDA-Public Use
  Company Number: CA-TEVA-2019-CA-1058855

PATIENT
  Sex: Female
  Weight: 2 kg

DRUGS (4)
  1. AMIODARONE [Suspect]
     Active Substance: AMIODARONE
     Indication: ARRHYTHMIA
     Route: 065
  2. PROPRANOLOL [Suspect]
     Active Substance: PROPRANOLOL HYDROCHLORIDE
     Indication: ARRHYTHMIA
     Dosage: 2 MG/KG DAILY;
     Route: 065
  3. PROPRANOLOL [Suspect]
     Active Substance: PROPRANOLOL HYDROCHLORIDE
     Route: 065
  4. DIGOXIN. [Concomitant]
     Active Substance: DIGOXIN
     Indication: TACHYCARDIA
     Route: 065

REACTIONS (7)
  - Hypothermia [Unknown]
  - Hypoglycaemia [Unknown]
  - Altered state of consciousness [Unknown]
  - Bronchiolitis [Unknown]
  - Pneumonia [Unknown]
  - Bradycardia [Unknown]
  - Seizure [Unknown]
